FAERS Safety Report 15999749 (Version 7)
Quarter: 2022Q1

REPORT INFORMATION
  Report Type: Spontaneous
  Country: US (occurrence: US)
  Receive Date: 20190225
  Receipt Date: 20220119
  Transmission Date: 20220423
  Serious: No
  Sender: FDA-Public Use
  Company Number: US-PFIZER INC-2019082864

PATIENT
  Age: 77 Year
  Sex: Female

DRUGS (4)
  1. EUCRISA [Suspect]
     Active Substance: CRISABOROLE
     Indication: Dermatitis atopic
     Dosage: APPLY TO THE AFFECTED AREA ON ENTIRE TRUNK AND BILATERAL LEGS TWICE DAILY
     Route: 061
     Dates: start: 20181102
  2. BETAMETHASONE DIPROPIONATE [Concomitant]
     Active Substance: BETAMETHASONE DIPROPIONATE
     Indication: Dermatitis atopic
     Dosage: UNK UNK, AS NEEDED (2 WEEKS ON W/4 WEEKS OFF AS NEEDED)
  3. PARAFFIN [Concomitant]
     Active Substance: PARAFFIN
     Dosage: UNK
  4. CETAPHIL [BUTYL HYDROXYBENZOATE;CETYL ALCOHOL;PROPYLENE GLYCOL;SODIUM [Concomitant]
     Dosage: UNK

REACTIONS (10)
  - Application site pain [Recovered/Resolved]
  - Rash [Unknown]
  - Skin burning sensation [Unknown]
  - Rash pruritic [Unknown]
  - Skin exfoliation [Unknown]
  - Dry skin [Unknown]
  - Hypoacusis [Unknown]
  - Skin disorder [Unknown]
  - Sensitivity to weather change [Unknown]
  - Off label use [Unknown]
